FAERS Safety Report 26098549 (Version 2)
Quarter: 2025Q4

REPORT INFORMATION
  Report Type: Spontaneous
  Country: US (occurrence: US)
  Receive Date: 20251127
  Receipt Date: 20251205
  Transmission Date: 20260118
  Serious: No
  Sender: MYLAN
  Company Number: US-MYLANLABS-2025M1099714

PATIENT
  Sex: Female
  Weight: 61.23 kg

DRUGS (12)
  1. LEVOTHYROXINE SODIUM [Suspect]
     Active Substance: LEVOTHYROXINE SODIUM
     Indication: Hypothyroidism
     Dosage: UNK, QD (HALF OF A 125 MCG TABLET DAILY, MONDAY-SATURDAY)
  2. LEVOTHYROXINE SODIUM [Suspect]
     Active Substance: LEVOTHYROXINE SODIUM
     Dosage: UNK, QD (HALF OF A 125 MCG TABLET DAILY, MONDAY-SATURDAY)
  3. LEVOTHYROXINE SODIUM [Suspect]
     Active Substance: LEVOTHYROXINE SODIUM
     Dosage: UNK, QD (HALF OF A 125 MCG TABLET DAILY, MONDAY-SATURDAY)
     Route: 048
  4. LEVOTHYROXINE SODIUM [Suspect]
     Active Substance: LEVOTHYROXINE SODIUM
     Dosage: UNK, QD (HALF OF A 125 MCG TABLET DAILY, MONDAY-SATURDAY)
     Route: 048
  5. LEVOTHYROXINE SODIUM [Suspect]
     Active Substance: LEVOTHYROXINE SODIUM
     Dosage: UNK, QD (HALF OF A 125 MCG TABLET DAILY, MONDAY-SUNDAY)
     Dates: start: 20251008
  6. LEVOTHYROXINE SODIUM [Suspect]
     Active Substance: LEVOTHYROXINE SODIUM
     Dosage: UNK, QD (HALF OF A 125 MCG TABLET DAILY, MONDAY-SUNDAY)
     Dates: start: 20251008
  7. LEVOTHYROXINE SODIUM [Suspect]
     Active Substance: LEVOTHYROXINE SODIUM
     Dosage: UNK, QD (HALF OF A 125 MCG TABLET DAILY, MONDAY-SUNDAY)
     Route: 048
     Dates: start: 20251008
  8. LEVOTHYROXINE SODIUM [Suspect]
     Active Substance: LEVOTHYROXINE SODIUM
     Dosage: UNK, QD (HALF OF A 125 MCG TABLET DAILY, MONDAY-SUNDAY)
     Route: 048
     Dates: start: 20251008
  9. LIOTHYRONINE [Concomitant]
     Active Substance: LIOTHYRONINE
     Indication: Tri-iodothyronine abnormal
     Dosage: 5 MICROGRAM (5 MCG WHOLE PILL ON EVEN DAYS AND HALF A PILL ON ODD DAYS)
  10. LIOTHYRONINE [Concomitant]
     Active Substance: LIOTHYRONINE
     Dosage: 5 MICROGRAM (5 MCG WHOLE PILL ON EVEN DAYS AND HALF A PILL ON ODD DAYS)
     Route: 065
  11. LIOTHYRONINE [Concomitant]
     Active Substance: LIOTHYRONINE
     Dosage: 5 MICROGRAM (5 MCG WHOLE PILL ON EVEN DAYS AND HALF A PILL ON ODD DAYS)
     Route: 065
  12. LIOTHYRONINE [Concomitant]
     Active Substance: LIOTHYRONINE
     Dosage: 5 MICROGRAM (5 MCG WHOLE PILL ON EVEN DAYS AND HALF A PILL ON ODD DAYS)

REACTIONS (7)
  - Symptom recurrence [Unknown]
  - Blood thyroid stimulating hormone increased [Unknown]
  - Nasopharyngitis [Unknown]
  - Weight increased [Unknown]
  - Fatigue [Unknown]
  - Irritability [Unknown]
  - Drug ineffective [Unknown]
